FAERS Safety Report 7167897-6 (Version None)
Quarter: 2010Q4

REPORT INFORMATION
  Report Type: 
  Country: None (occurrence: None)
  Receive Date: 20101216
  Receipt Date: 20101213
  Transmission Date: 20110411
  Serious: Yes (Hospitalization, Other)
  Sender: FDA-Public Use
  Company Number: US-PFIZER INC-2010171672

PATIENT
  Sex: Female
  Weight: 76 kg

DRUGS (6)
  1. ANTIVERT [Suspect]
     Indication: VERTIGO
     Dosage: FREQUENCY: 4X/DAY,
     Dates: start: 19800101
  2. ANTIVERT [Suspect]
     Indication: MENIERE'S DISEASE
     Dosage: 25 MG, 3X/DAY
  3. MECLIZINE HYDROCHLORIDE [Suspect]
     Indication: VERTIGO
     Dosage: FREQUENCY: 4X/DAY,
     Dates: start: 19940101, end: 19940101
  4. MECLIZINE HYDROCHLORIDE [Suspect]
     Indication: MENIERE'S DISEASE
  5. AZULFIDINE [Concomitant]
  6. TOPROL-XL [Concomitant]

REACTIONS (3)
  - CIRCULATORY COLLAPSE [None]
  - HYPOTENSION [None]
  - VERTIGO [None]
